FAERS Safety Report 17840649 (Version 1)
Quarter: 2020Q2

REPORT INFORMATION
  Report Type: Spontaneous
  Country: US (occurrence: US)
  Receive Date: 20200529
  Receipt Date: 20200529
  Transmission Date: 20200714
  Serious: Yes (Other)
  Sender: FDA-Public Use
  Company Number: None

PATIENT
  Age: 31 Year
  Sex: Female
  Weight: 127 kg

DRUGS (18)
  1. TRAZODONE [Concomitant]
     Active Substance: TRAZODONE HYDROCHLORIDE
  2. ERGOCALCIFEROL 50,000 UNIT [Concomitant]
  3. OMEPRAZOLE DELAYED RELEASE 40MG [Concomitant]
  4. ALBUTEROL SULFATE 90MCG [Concomitant]
     Active Substance: ALBUTEROL SULFATE
  5. ESCITALOPRAM 10MG [Concomitant]
     Active Substance: ESCITALOPRAM OXALATE
  6. FENOFIBRATE 134MG [Concomitant]
     Active Substance: FENOFIBRATE
  7. FLUTICASONE 50MCG [Concomitant]
     Active Substance: FLUTICASONE
  8. MONTELUKAST [Concomitant]
     Active Substance: MONTELUKAST SODIUM
  9. BUSPIRONE [Concomitant]
     Active Substance: BUSPIRONE HYDROCHLORIDE
  10. EMGALITY [Suspect]
     Active Substance: GALCANEZUMAB-GNLM
     Indication: MIGRAINE
     Dosage: ?          OTHER FREQUENCY:EVERY 30 DAYS;?
     Route: 058
  11. GABAPENTIN 300MG [Concomitant]
     Active Substance: GABAPENTIN
  12. TOPIRAMATE. [Concomitant]
     Active Substance: TOPIRAMATE
  13. MEDROXYPROGESTERONE 150MG [Concomitant]
  14. LAMOTRIGINE 100MG [Concomitant]
     Active Substance: LAMOTRIGINE
  15. METHOCARBAMOL 750MG [Concomitant]
     Active Substance: METHOCARBAMOL
  16. IBUPROFEN 800MG [Concomitant]
     Active Substance: IBUPROFEN
  17. LORATADINE 10MG [Concomitant]
     Active Substance: LORATADINE
  18. PROPRANOLOL 40MG [Concomitant]

REACTIONS (1)
  - Anaemia [None]

NARRATIVE: CASE EVENT DATE: 20200527
